FAERS Safety Report 19095547 (Version 2)
Quarter: 2024Q4

REPORT INFORMATION
  Report Type: Spontaneous
  Country: SE (occurrence: SE)
  Receive Date: 20210406
  Receipt Date: 20241011
  Transmission Date: 20250115
  Serious: Yes (Disabling)
  Sender: RANBAXY
  Company Number: SE-MPA-1615038370973

PATIENT
  Age: 63 Year
  Sex: Male

DRUGS (1)
  1. CIPROFLOXACIN [Suspect]
     Active Substance: CIPROFLOXACIN
     Indication: Epididymitis
     Dosage: 1000 MILLIGRAM, DAILY
     Route: 065
     Dates: start: 20161115, end: 201612

REACTIONS (1)
  - Hypoacusis [Recovered/Resolved with Sequelae]

NARRATIVE: CASE EVENT DATE: 20161201
